FAERS Safety Report 9287275 (Version 2)
Quarter: 2013Q2

REPORT INFORMATION
  Report Type: Report from Study
  Country: SE (occurrence: SE)
  Receive Date: 20130513
  Receipt Date: 20130604
  Transmission Date: 20140414
  Serious: Yes (Hospitalization)
  Sender: FDA-Public Use
  Company Number: SE-BRISTOL-MYERS SQUIBB COMPANY-18868018

PATIENT
  Age: 67 Year
  Sex: Female

DRUGS (17)
  1. BLINDED: IPILIMUMAB [Suspect]
     Indication: NON-SMALL CELL LUNG CANCER
     Route: 042
     Dates: start: 20130425
  2. CARBOPLATIN [Suspect]
     Indication: NON-SMALL CELL LUNG CANCER
     Route: 042
     Dates: start: 20130314
  3. PACLITAXEL [Suspect]
     Indication: NON-SMALL CELL LUNG CANCER
     Route: 042
     Dates: start: 20130314
  4. BLINDED: PLACEBO [Suspect]
     Indication: NON-SMALL CELL LUNG CANCER
     Route: 042
     Dates: start: 20130425
  5. OMEPRAZOLE [Concomitant]
  6. CILAXORAL [Concomitant]
     Route: 048
  7. INSULIN ASPART [Concomitant]
  8. GLIMEPIRIDE [Concomitant]
  9. TROMBYL [Concomitant]
  10. IMDUR [Concomitant]
  11. BISOPROLOL [Concomitant]
  12. ATORVASTATIN [Concomitant]
  13. ZANTAC [Concomitant]
  14. PRIMPERAN [Concomitant]
  15. ONDANSETRON [Concomitant]
  16. BETAPRED [Concomitant]
  17. TAVEGYL [Concomitant]

REACTIONS (1)
  - Chest pain [Recovered/Resolved]
